FAERS Safety Report 5828524-0 (Version None)
Quarter: 2008Q3

REPORT INFORMATION
  Report Type: 
  Country: None (occurrence: None)
  Receive Date: 20080731
  Receipt Date: 20080721
  Transmission Date: 20090109
  Serious: Yes (Hospitalization)
  Sender: FDA-Public Use
  Company Number: FR-ASTRAZENECA-2008CG01122

PATIENT
  Age: 40 Year
  Sex: Male

DRUGS (7)
  1. FOSCAVIR [Suspect]
     Indication: CYTOMEGALOVIRUS INFECTION
     Route: 042
     Dates: start: 20080101
  2. CYMEVAN [Suspect]
     Indication: CYTOMEGALOVIRUS INFECTION
     Route: 042
     Dates: start: 20080101
  3. AVLOCARDYL [Concomitant]
     Route: 048
  4. PANTOPRAZOLE SODIUM [Concomitant]
     Route: 048
  5. SOLUPRED [Concomitant]
     Route: 048
  6. CELLCEPT [Concomitant]
     Route: 048
  7. TACROLIMUS [Concomitant]
     Route: 048

REACTIONS (2)
  - BLOOD CALCIUM INCREASED [None]
  - POLYNEUROPATHY [None]
